FAERS Safety Report 7099438-6 (Version None)
Quarter: 2010Q4

REPORT INFORMATION
  Report Type: 
  Country: None (occurrence: None)
  Receive Date: 20101112
  Receipt Date: 20080929
  Transmission Date: 20110411
  Serious: No
  Sender: FDA-Public Use
  Company Number: US-KINGPHARMUSA00001-K200801138

PATIENT
  Sex: Female
  Weight: 61.224 kg

DRUGS (10)
  1. LEVOXYL [Suspect]
     Indication: HYPOTHYROIDISM
     Dosage: 100 MCG, QD
     Route: 048
     Dates: start: 20000101
  2. KLONOPIN [Concomitant]
     Indication: ANXIETY
  3. ZOLOFT [Concomitant]
  4. AMBIEN [Concomitant]
  5. CALCIUM WITH VITAMIN D             /00944201/ [Concomitant]
  6. MULTI-VITAMINS [Concomitant]
  7. ASPIRIN [Concomitant]
  8. FOSAMAX [Concomitant]
  9. IRON [Concomitant]
  10. ALLEGRA [Concomitant]

REACTIONS (1)
  - BLOOD TEST ABNORMAL [None]
